FAERS Safety Report 9176870 (Version 3)
Quarter: 2013Q2

REPORT INFORMATION
  Report Type: Spontaneous
  Country: US (occurrence: US)
  Receive Date: 20130321
  Receipt Date: 20130510
  Transmission Date: 20140414
  Serious: Yes (Hospitalization, Other)
  Sender: FDA-Public Use
  Company Number: US-JNJFOC-20130307375

PATIENT
  Age: 92 Year
  Sex: Male
  Weight: 78.93 kg

DRUGS (4)
  1. XARELTO [Suspect]
     Indication: DEEP VEIN THROMBOSIS
     Route: 048
  2. METOPROLOL [Concomitant]
     Indication: HYPERTENSION
     Route: 065
  3. ARICEPT [Concomitant]
     Indication: DEMENTIA
     Route: 065
  4. NAMENDA [Concomitant]
     Indication: DEMENTIA
     Route: 065

REACTIONS (2)
  - Pulmonary embolism [Not Recovered/Not Resolved]
  - Fall [Recovering/Resolving]
